FAERS Safety Report 18258501 (Version 1)
Quarter: 2020Q3

REPORT INFORMATION
  Report Type: Spontaneous
  Country: CN (occurrence: CN)
  Receive Date: 20200911
  Receipt Date: 20200911
  Transmission Date: 20201103
  Serious: Yes (Hospitalization)
  Sender: FDA-Public Use
  Company Number: CN-SGP-000091

PATIENT
  Age: 64 Year

DRUGS (9)
  1. HYDROXYCHLOROQUINE [Suspect]
     Active Substance: HYDROXYCHLOROQUINE
     Indication: LUPUS NEPHRITIS
     Dosage: 0.2G TWICE DAILY
     Route: 065
  2. SODIUM BICARBONATE. [Suspect]
     Active Substance: SODIUM BICARBONATE
     Indication: LUPUS NEPHRITIS
     Dosage: 0.5G THREE TIMES A DAY
     Route: 065
  3. POTASSIUM CHLORIDE. [Suspect]
     Active Substance: POTASSIUM CHLORIDE
     Indication: LUPUS NEPHRITIS
     Route: 065
  4. CICLOSPORIN [Suspect]
     Active Substance: CYCLOSPORINE
     Indication: LUPUS NEPHRITIS
     Dosage: 50 MG TWICE DAILY
     Route: 065
  5. TORASEMIDE [Suspect]
     Active Substance: TORSEMIDE
     Indication: LUPUS NEPHRITIS
     Route: 065
  6. METHYLPREDNISOLONE. [Suspect]
     Active Substance: METHYLPREDNISOLONE
     Indication: LUPUS NEPHRITIS
     Dosage: 24 MG ONCE DAILY
     Route: 065
  7. AMLODIPINE [Suspect]
     Active Substance: AMLODIPINE BESYLATE
     Indication: HYPERTENSION
     Dosage: 5MG ONCE DAILY
     Route: 065
  8. FEBUXOSTAT. [Suspect]
     Active Substance: FEBUXOSTAT
     Indication: LUPUS NEPHRITIS
     Dosage: 40 MG ONCE DAILY
     Route: 065
  9. WARFARIN [Suspect]
     Active Substance: WARFARIN
     Indication: LUPUS NEPHRITIS
     Route: 065

REACTIONS (2)
  - Product use in unapproved indication [Unknown]
  - Pneumonia [Unknown]
